FAERS Safety Report 15992808 (Version 1)
Quarter: 2019Q1

REPORT INFORMATION
  Report Type: Report from Study
  Country: US (occurrence: US)
  Receive Date: 20190221
  Receipt Date: 20190221
  Transmission Date: 20190418
  Serious: Yes (Other)
  Sender: FDA-Public Use
  Company Number: US-JAZZ-2018-US-009554

PATIENT
  Sex: Female

DRUGS (34)
  1. XYREM [Suspect]
     Active Substance: SODIUM OXYBATE
     Indication: NARCOLEPSY
     Dosage: 2.25 G, BID
     Route: 048
     Dates: start: 201803, end: 201804
  2. XYREM [Suspect]
     Active Substance: SODIUM OXYBATE
     Dosage: 4.5 G, BID
     Route: 048
     Dates: start: 201805
  3. CEFALEXIN [Concomitant]
     Active Substance: CEPHALEXIN
  4. METFORMIN HCL [Concomitant]
     Active Substance: METFORMIN HYDROCHLORIDE
  5. BUSPIRONE HCL [Concomitant]
     Active Substance: BUSPIRONE HYDROCHLORIDE
  6. OMEPRAZOLE. [Concomitant]
     Active Substance: OMEPRAZOLE
  7. ASCORBIC ACID. [Concomitant]
     Active Substance: ASCORBIC ACID
  8. NITROFURANTOIN. [Concomitant]
     Active Substance: NITROFURANTOIN
  9. SUCRALFATE. [Concomitant]
     Active Substance: SUCRALFATE
  10. LUNESTA [Concomitant]
     Active Substance: ESZOPICLONE
  11. HYDROXYZINE [Concomitant]
     Active Substance: HYDROXYZINE HYDROCHLORIDE
  12. NAPROXEN SODIUM. [Concomitant]
     Active Substance: NAPROXEN SODIUM
  13. PRAZOSIN. [Concomitant]
     Active Substance: PRAZOSIN
  14. ZANTAC [Concomitant]
     Active Substance: RANITIDINE HYDROCHLORIDE
  15. SUMATRIPTAN SUCCINATE. [Concomitant]
     Active Substance: SUMATRIPTAN SUCCINATE
  16. IBUPROFEN. [Concomitant]
     Active Substance: IBUPROFEN
  17. LAMICTAL [Concomitant]
     Active Substance: LAMOTRIGINE
  18. ADDERALL [Suspect]
     Active Substance: AMPHETAMINE ASPARTATE\AMPHETAMINE SULFATE\DEXTROAMPHETAMINE SACCHARATE\DEXTROAMPHETAMINE SULFATE
     Indication: PRODUCT USED FOR UNKNOWN INDICATION
  19. DICYCLOVERINE HYDROCHLORIDE W/DOXYL/04687601/ [Concomitant]
  20. AMBIEN [Concomitant]
     Active Substance: ZOLPIDEM TARTRATE
  21. DULOXETINE HCL [Concomitant]
     Active Substance: DULOXETINE HYDROCHLORIDE
  22. LYRICA [Concomitant]
     Active Substance: PREGABALIN
  23. PROPRANOLOL [Concomitant]
     Active Substance: PROPRANOLOL HYDROCHLORIDE
  24. XYREM [Suspect]
     Active Substance: SODIUM OXYBATE
     Dosage: 3 G, BID
     Route: 048
     Dates: start: 201804, end: 201805
  25. CYMBALTA [Concomitant]
     Active Substance: DULOXETINE HYDROCHLORIDE
  26. ONDANSETRON HCL [Concomitant]
     Active Substance: ONDANSETRON HYDROCHLORIDE
  27. RITALIN [Suspect]
     Active Substance: METHYLPHENIDATE HYDROCHLORIDE
     Indication: PRODUCT USED FOR UNKNOWN INDICATION
  28. TIZANIDINE HCL [Concomitant]
     Active Substance: TIZANIDINE HYDROCHLORIDE
  29. FLUOXETINE HCL [Concomitant]
     Active Substance: FLUOXETINE HYDROCHLORIDE
  30. FENOFIBRATE. [Concomitant]
     Active Substance: FENOFIBRATE
  31. PROZAC [Concomitant]
     Active Substance: FLUOXETINE HYDROCHLORIDE
  32. DEXILANT [Concomitant]
     Active Substance: DEXLANSOPRAZOLE
  33. MIRAPEX [Concomitant]
     Active Substance: PRAMIPEXOLE DIHYDROCHLORIDE
  34. MOTRIN [Concomitant]
     Active Substance: IBUPROFEN

REACTIONS (11)
  - Amyotrophic lateral sclerosis [Unknown]
  - Muscle spasms [Unknown]
  - Spinal osteoarthritis [Not Recovered/Not Resolved]
  - Stress [Not Recovered/Not Resolved]
  - Blood pressure increased [Recovering/Resolving]
  - Condition aggravated [Not Recovered/Not Resolved]
  - Nervous system disorder [Not Recovered/Not Resolved]
  - Memory impairment [Not Recovered/Not Resolved]
  - Osteoarthritis [Not Recovered/Not Resolved]
  - Nervousness [Not Recovered/Not Resolved]
  - Headache [Not Recovered/Not Resolved]

NARRATIVE: CASE EVENT DATE: 2018
